FAERS Safety Report 8827028 (Version 1)
Quarter: 2012Q4

REPORT INFORMATION
  Report Type: 
  Country: US (occurrence: US)
  Receive Date: 20121008
  Receipt Date: 20121008
  Transmission Date: 20130627
  Serious: No
  Sender: FDA-Public Use
  Company Number: US-BIOGENIDEC-2012BI041191

PATIENT
  Age: 60 Year
  Sex: Female

DRUGS (1)
  1. TYSABRI [Suspect]
     Indication: MULTIPLE SCLEROSIS
     Route: 042
     Dates: start: 20120823

REACTIONS (9)
  - Contusion [Recovered/Resolved]
  - Emotional distress [Recovered/Resolved]
  - Fear [Recovered/Resolved]
  - Psychological trauma [Recovered/Resolved]
  - Injury [Recovered/Resolved]
  - Poor venous access [Unknown]
  - Anger [Recovered/Resolved]
  - Infusion related reaction [Recovered/Resolved]
  - Infusion site pain [Recovered/Resolved]
